FAERS Safety Report 5043300-7 (Version None)
Quarter: 2006Q2

REPORT INFORMATION
  Report Type: 
  Country: None (occurrence: None)
  Receive Date: 20060629
  Receipt Date: 20060614
  Transmission Date: 20061013
  Serious: Yes (Life-Threatening)
  Sender: FDA-Public Use
  Company Number: 2006US001243

PATIENT
  Age: 60 Year
  Sex: Female

DRUGS (1)
  1. ADENOSCAN [Suspect]
     Indication: SCAN MYOCARDIAL PERFUSION
     Dosage: IV NOS
     Route: 042
     Dates: start: 20060529, end: 20060529

REACTIONS (4)
  - BLOOD PRESSURE INCREASED [None]
  - LEFT VENTRICULAR FAILURE [None]
  - PULMONARY OEDEMA [None]
  - RESPIRATORY ARREST [None]
